FAERS Safety Report 7998083-5 (Version None)
Quarter: 2011Q4

REPORT INFORMATION
  Report Type: 
  Country: None (occurrence: None)
  Receive Date: 20111221
  Receipt Date: 20110110
  Transmission Date: 20120403
  Serious: No
  Sender: FDA-Public Use
  Company Number: US-GLAXOSMITHKLINE-A0904963A

PATIENT
  Age: 67 Year
  Sex: Male

DRUGS (14)
  1. ATENOLOL [Concomitant]
  2. BENADRYL [Concomitant]
  3. TRAMADOL HCL [Concomitant]
  4. VITAMIN B-12 [Concomitant]
  5. GLUCOSAMINE [Concomitant]
  6. ASPIRIN [Concomitant]
  7. SIMVASTATIN [Concomitant]
  8. PAXIL [Concomitant]
  9. VITAMIN D [Concomitant]
  10. GLIPIZIDE [Concomitant]
  11. PIOGLITAZONE [Concomitant]
  12. FENOFIBRATE [Concomitant]
  13. LOVAZA [Suspect]
     Indication: BLOOD TRIGLYCERIDES INCREASED
     Dosage: 4G TWICE PER DAY
     Route: 048
     Dates: start: 20050101
  14. DIOVAN [Concomitant]

REACTIONS (4)
  - PRODUCT QUALITY ISSUE [None]
  - DYSGEUSIA [None]
  - URINE ODOUR ABNORMAL [None]
  - ERUCTATION [None]
